FAERS Safety Report 11158720 (Version 1)
Quarter: 2015Q2

REPORT INFORMATION
  Report Type: Spontaneous
  Country: US (occurrence: None)
  Receive Date: 20150514
  Receipt Date: 20150514
  Transmission Date: 20150821
  Serious: Yes (Death)
  Sender: FDA-Public Use
  Company Number: 2015010042

PATIENT
  Age: 57 Year
  Sex: Female

DRUGS (7)
  1. HYDROCODONE W/ACETAMINOPHEN [Suspect]
     Active Substance: ACETAMINOPHEN\HYDROCODONE BITARTRATE
  2. FLUOXETINE (FLUOXETINE) [Suspect]
     Active Substance: FLUOXETINE HYDROCHLORIDE
  3. ALPRAZOLAM (ALPRAZOLAM) [Suspect]
     Active Substance: ALPRAZOLAM
  4. CODEINE [Suspect]
     Active Substance: CODEINE
  5. TRAMADOL (TRAMADOL) [Suspect]
     Active Substance: TRAMADOL
  6. CYCLOBENZAPRINE (CYCLOBENZAPRINE) [Suspect]
     Active Substance: CYCLOBENZAPRINE
  7. ZOLPIDEM (ZOLPIDEM) [Suspect]
     Active Substance: ZOLPIDEM TARTRATE

REACTIONS (1)
  - Completed suicide [None]

NARRATIVE: CASE EVENT DATE: 2013
